APPROVED DRUG PRODUCT: TOBRAMYCIN AND DEXAMETHASONE
Active Ingredient: DEXAMETHASONE; TOBRAMYCIN
Strength: 0.1%;0.3%
Dosage Form/Route: SUSPENSION/DROPS;OPHTHALMIC
Application: A064134 | Product #001 | TE Code: AB
Applicant: BAUSCH AND LOMB PHARMACEUTICALS INC
Approved: Oct 27, 1999 | RLD: No | RS: No | Type: RX